FAERS Safety Report 9014087 (Version 4)
Quarter: 2013Q1

REPORT INFORMATION
  Report Type: Report from Study
  Country: JP (occurrence: JP)
  Receive Date: 20130115
  Receipt Date: 20130306
  Transmission Date: 20140127
  Serious: Yes (Hospitalization)
  Sender: FDA-Public Use
  Company Number: JP-BAXTER-2013BAX001572

PATIENT
  Age: 77 Year
  Sex: Female
  Weight: 42.1 kg

DRUGS (27)
  1. ENDOXAN 1000 MG, POUDRE POUR SOLUTION INJECTABLE [Suspect]
     Indication: B-CELL LYMPHOMA
     Route: 042
     Dates: start: 20120920
  2. ENDOXAN 1000 MG, POUDRE POUR SOLUTION INJECTABLE [Suspect]
     Route: 042
     Dates: start: 20121218
  3. RITUXIMAB [Suspect]
     Indication: B-CELL LYMPHOMA
     Route: 042
     Dates: start: 20120919
  4. RITUXIMAB [Suspect]
     Route: 042
     Dates: start: 20121217
  5. DOXORUBICIN [Suspect]
     Indication: B-CELL LYMPHOMA
     Route: 042
     Dates: start: 20120920
  6. DOXORUBICIN [Suspect]
     Route: 042
     Dates: start: 20121218
  7. VINCRISTINE [Suspect]
     Indication: B-CELL LYMPHOMA
     Route: 042
     Dates: start: 20120920
  8. VINCRISTINE [Suspect]
     Route: 042
     Dates: start: 20121218
  9. PREDNISOLONE [Suspect]
     Indication: B-CELL LYMPHOMA
     Route: 048
     Dates: start: 20120919
  10. PREDNISOLONE [Suspect]
     Route: 048
     Dates: start: 20121217
  11. NARTOGRASTIM [Concomitant]
     Indication: NEUTROPENIA
     Route: 065
     Dates: start: 20121203, end: 20121204
  12. NARTOGRASTIM [Concomitant]
     Indication: PROPHYLAXIS
     Route: 065
     Dates: start: 20121231, end: 20130101
  13. NARTOGRASTIM [Concomitant]
     Route: 065
     Dates: start: 20121203, end: 20121214
  14. ALLOPURINOL [Concomitant]
     Indication: PRODUCT USED FOR UNKNOWN INDICATION
     Route: 065
     Dates: start: 20120919, end: 20121230
  15. ALPRAZOLAM [Concomitant]
     Indication: DELIRIUM
     Route: 065
     Dates: start: 20120927
  16. SUFLAMETHOXAZOLE/TRIMETHOPRIM [Concomitant]
     Indication: PROPHYLAXIS
     Route: 065
     Dates: start: 20120919
  17. LAFUTIDINE [Concomitant]
     Indication: PRODUCT USED FOR UNKNOWN INDICATION
     Route: 065
     Dates: start: 20120919
  18. BUDESONIDE [Concomitant]
     Indication: ASTHMA
     Route: 065
  19. AMLODIN [Concomitant]
     Indication: PRODUCT USED FOR UNKNOWN INDICATION
     Route: 065
  20. KIPRES [Concomitant]
     Indication: ASTHMA
     Route: 065
  21. MAGNESIUM OXIDE [Concomitant]
     Indication: PROPHYLAXIS
     Route: 065
     Dates: start: 20121004
  22. AMLODIPINE BESILATE [Concomitant]
     Indication: HYPERTENSION
     Route: 065
     Dates: start: 20120927
  23. TRAZODONE HYDROCHLORIDE [Concomitant]
     Indication: DELIRIUM
     Route: 065
     Dates: start: 20130112, end: 20130112
  24. TRAZODONE HYDROCHLORIDE [Concomitant]
     Route: 065
     Dates: start: 20130114, end: 20130114
  25. RISPERIDONE [Concomitant]
     Indication: DELIRIUM
     Route: 065
     Dates: start: 20130111, end: 20130116
  26. HALOPERIDOL [Concomitant]
     Indication: DELIRIUM
     Route: 065
     Dates: start: 20130106, end: 20130106
  27. HALOPERIDOL [Concomitant]
     Route: 065
     Dates: start: 20130111, end: 20130111

REACTIONS (1)
  - Pneumonia [Recovered/Resolved]
